FAERS Safety Report 10612993 (Version 1)
Quarter: 2014Q4

REPORT INFORMATION
  Report Type: Spontaneous
  Country: CN (occurrence: CN)
  Receive Date: 20141127
  Receipt Date: 20141127
  Transmission Date: 20150529
  Serious: Yes (Hospitalization)
  Sender: FDA-Public Use
  Company Number: PHHY2014CN153673

PATIENT
  Age: 50 Year
  Sex: Male

DRUGS (5)
  1. AMOXICILLIN. [Concomitant]
     Active Substance: AMOXICILLIN
     Indication: INFLAMMATION
     Route: 065
  2. SULFASALAZINE. [Concomitant]
     Active Substance: SULFASALAZINE
     Indication: ANKYLOSING SPONDYLITIS
     Dosage: 0.25 G, TID
     Route: 048
  3. AZLOCILLIN [Concomitant]
     Active Substance: AZLOCILLIN
     Indication: INFLAMMATION
     Route: 065
  4. DICLOFENAC [Suspect]
     Active Substance: DICLOFENAC
     Indication: INFLAMMATION
     Dosage: 75 MG, QD
     Route: 048
     Dates: start: 20120621, end: 20120909
  5. DICLOFENAC [Suspect]
     Active Substance: DICLOFENAC
     Indication: PAIN

REACTIONS (17)
  - Decreased appetite [Recovering/Resolving]
  - Diarrhoea [Recovering/Resolving]
  - Pyrexia [Recovering/Resolving]
  - Henoch-Schonlein purpura [Unknown]
  - Mobility decreased [Recovering/Resolving]
  - Tenderness [Recovering/Resolving]
  - Nephritis [Recovering/Resolving]
  - Splenomegaly [Recovering/Resolving]
  - Pruritus [Recovering/Resolving]
  - Arthralgia [Recovering/Resolving]
  - Erythema [Recovering/Resolving]
  - Oedema peripheral [Recovered/Resolved]
  - Faecal volume decreased [Recovering/Resolving]
  - Joint swelling [Recovering/Resolving]
  - Immune system disorder [Recovering/Resolving]
  - Abdominal pain [Recovering/Resolving]
  - Rash [Recovering/Resolving]

NARRATIVE: CASE EVENT DATE: 20120908
